FAERS Safety Report 23631276 (Version 5)
Quarter: 2024Q2

REPORT INFORMATION
  Report Type: Report from Study
  Country: DE (occurrence: DE)
  Receive Date: 20240314
  Receipt Date: 20240613
  Transmission Date: 20240716
  Serious: Yes (Hospitalization, Other)
  Sender: FDA-Public Use
  Company Number: DE-INSMED, INC.-2024-00791-DE

PATIENT

DRUGS (3)
  1. ARIKAYCE [Suspect]
     Active Substance: AMIKACIN
     Indication: Atypical mycobacterial infection
     Dosage: 590 MILLIGRAM, QD
     Route: 055
     Dates: start: 20240214, end: 20240225
  2. ARIKAYCE [Suspect]
     Active Substance: AMIKACIN
     Dosage: 590 MILLIGRAM, QD
     Route: 055
     Dates: start: 20240324, end: 20240406
  3. OXYGEN [Concomitant]
     Active Substance: OXYGEN
     Indication: Product used for unknown indication
     Dosage: UNK, UNK
     Route: 065
     Dates: start: 20240229

REACTIONS (9)
  - Hospitalisation [Unknown]
  - Chronic obstructive pulmonary disease [Not Recovered/Not Resolved]
  - Dyspnoea [Not Recovered/Not Resolved]
  - Oxygen saturation decreased [Unknown]
  - Sputum discoloured [Not Recovered/Not Resolved]
  - Adverse drug reaction [Unknown]
  - Dysphonia [Recovering/Resolving]
  - Weight decreased [Not Recovered/Not Resolved]
  - Bronchoscopy [Unknown]

NARRATIVE: CASE EVENT DATE: 20240101
